FAERS Safety Report 11766328 (Version 1)
Quarter: 2015Q4

REPORT INFORMATION
  Report Type: Report from Study
  Country: US (occurrence: US)
  Receive Date: 20151123
  Receipt Date: 20151123
  Transmission Date: 20160304
  Serious: No
  Sender: FDA-Public Use
  Company Number: PHEH2015US023945

PATIENT
  Sex: Male

DRUGS (1)
  1. ENTRESTO [Suspect]
     Active Substance: SACUBITRIL\VALSARTAN
     Indication: CARDIAC FAILURE
     Dosage: 100 MG, BID
     Route: 048
     Dates: start: 20151102, end: 20151104

REACTIONS (7)
  - Pyrexia [Unknown]
  - Nausea [Unknown]
  - Syncope [Unknown]
  - Heart rate increased [Unknown]
  - Vomiting [Unknown]
  - Asthenia [Unknown]
  - Headache [Unknown]
